FAERS Safety Report 13055351 (Version 1)
Quarter: 2016Q4

REPORT INFORMATION
  Report Type: Spontaneous
  Country: US (occurrence: US)
  Receive Date: 20161222
  Receipt Date: 20161222
  Transmission Date: 20170207
  Serious: No
  Sender: FDA-Public Use
  Company Number: US-TEVA-717057ACC

PATIENT
  Sex: Male
  Weight: 88.53 kg

DRUGS (1)
  1. FENTAPAT-A [Suspect]
     Active Substance: FENTANYL
     Indication: PAIN
     Dosage: FORM STRENGTH: 100 MCG 5

REACTIONS (3)
  - Hyperhidrosis [Unknown]
  - Product adhesion issue [None]
  - Wrong technique in product usage process [None]
